FAERS Safety Report 7485305-2 (Version None)
Quarter: 2011Q2

REPORT INFORMATION
  Report Type: 
  Country: None (occurrence: None)
  Receive Date: 20110517
  Receipt Date: 20100505
  Transmission Date: 20111010
  Serious: No
  Sender: FDA-Public Use
  Company Number: US-NOVEN-ALL1-2010-02676

PATIENT

DRUGS (3)
  1. PULMICORT [Concomitant]
     Dosage: UNK MG, AS REQ'D
     Route: 055
     Dates: start: 20050101
  2. DAYTRANA [Suspect]
     Dosage: 15 MG, SCHOOL DAYS ONLY
     Route: 062
     Dates: start: 20100429
  3. XOPENEX [Concomitant]
     Dosage: UNK MG, AS REQ'D
     Route: 055
     Dates: start: 20050101

REACTIONS (7)
  - PRODUCT QUALITY ISSUE [None]
  - CONDITION AGGRAVATED [None]
  - APPLICATION SITE ERYTHEMA [None]
  - DECREASED APPETITE [None]
  - FATIGUE [None]
  - APPLICATION SITE IRRITATION [None]
  - INSOMNIA [None]
